FAERS Safety Report 25759201 (Version 1)
Quarter: 2025Q3

REPORT INFORMATION
  Report Type: Spontaneous
  Country: JP (occurrence: JP)
  Receive Date: 20250904
  Receipt Date: 20250904
  Transmission Date: 20251021
  Serious: Yes (Life-Threatening, Hospitalization, Other)
  Sender: ALKEM
  Company Number: JP-ALKEM LABORATORIES LIMITED-ES-ALKEM-2025-07832

PATIENT
  Age: 58 Year
  Sex: Female

DRUGS (3)
  1. MESALAMINE [Suspect]
     Active Substance: MESALAMINE
     Indication: Colitis ulcerative
     Dosage: 2400 MILLIGRAM, QD (TABLET) (PER BODY DAILY DOSE)
     Route: 048
     Dates: start: 202205
  2. BUDESONIDE [Concomitant]
     Active Substance: BUDESONIDE
     Indication: Colitis ulcerative
     Route: 061
  3. BUDESONIDE [Concomitant]
     Active Substance: BUDESONIDE
     Route: 061

REACTIONS (1)
  - Drug-induced liver injury [Recovered/Resolved]
